FAERS Safety Report 5131902-9 (Version None)
Quarter: 2006Q4

REPORT INFORMATION
  Report Type: 
  Country: None (occurrence: None)
  Receive Date: 20061016
  Receipt Date: 20061005
  Transmission Date: 20070319
  Serious: Yes (Hospitalization, Other)
  Sender: FDA-Public Use
  Company Number: 2006123171

PATIENT
  Age: 58 Year
  Sex: Female
  Weight: 79.3795 kg

DRUGS (6)
  1. ZOLOFT [Suspect]
     Indication: ANXIETY
     Dosage: 50 MG (1 IN 1 D)
     Dates: start: 20060822, end: 20060915
  2. LIPITOR [Concomitant]
  3. DIOVAN [Concomitant]
  4. PROZAC [Concomitant]
  5. ALPHAGAN [Concomitant]
  6. HYDROCHLOROTHIAZIDE [Concomitant]

REACTIONS (4)
  - BLINDNESS [None]
  - BLOOD POTASSIUM DECREASED [None]
  - ELECTROLYTE IMBALANCE [None]
  - HYPONATRAEMIA [None]
